FAERS Safety Report 10298172 (Version 1)
Quarter: 2014Q3

REPORT INFORMATION
  Report Type: Spontaneous
  Country: US (occurrence: US)
  Receive Date: 20140711
  Receipt Date: 20140711
  Transmission Date: 20150326
  Serious: No
  Sender: FDA-Public Use
  Company Number: US-GLAXOSMITHKLINE-A1054919A

PATIENT
  Age: 56 Year
  Sex: Female

DRUGS (27)
  1. RANITIDINE [Concomitant]
     Active Substance: RANITIDINE\RANITIDINE HYDROCHLORIDE
  2. PROTONIX [Concomitant]
     Active Substance: PANTOPRAZOLE SODIUM
  3. POTASSIUM [Concomitant]
     Active Substance: POTASSIUM
  4. FLOVENT [Suspect]
     Active Substance: FLUTICASONE PROPIONATE
     Indication: ASTHMA
     Dosage: 2PUFF PER DAY
     Route: 055
     Dates: start: 2011
  5. PROAIR HFA [Concomitant]
     Active Substance: ALBUTEROL SULFATE
  6. ATENOLOL. [Concomitant]
     Active Substance: ATENOLOL
  7. LEVOTHYROXINE [Concomitant]
     Active Substance: LEVOTHYROXINE
  8. ZYRTEC [Concomitant]
     Active Substance: CETIRIZINE HYDROCHLORIDE
  9. ZINC [Concomitant]
     Active Substance: ZINC\ZINC CHLORIDE
  10. DOXEPIN [Concomitant]
     Active Substance: DOXEPIN
  11. XANAX [Concomitant]
     Active Substance: ALPRAZOLAM
  12. WAL-PHED [Concomitant]
     Active Substance: PSEUDOEPHEDRINE HYDROCHLORIDE
  13. FOLIC ACID. [Concomitant]
     Active Substance: FOLIC ACID
  14. ECHINACEA [Concomitant]
     Active Substance: ECHINACEA, UNSPECIFIED
  15. MILK THISTLE [Concomitant]
     Active Substance: MILK THISTLE
  16. CALCIUM [Concomitant]
     Active Substance: CALCIUM
  17. LECITHIN [Concomitant]
     Active Substance: LECITHIN
  18. VITAMIN C [Concomitant]
     Active Substance: ASCORBIC ACID
  19. HCTZ [Concomitant]
     Active Substance: HYDROCHLOROTHIAZIDE
  20. CELEXA [Concomitant]
     Active Substance: CITALOPRAM HYDROBROMIDE
  21. VITAMINS A [Concomitant]
  22. B VITAMINS [Concomitant]
  23. B-VITAMINS [Concomitant]
  24. GARLIC. [Concomitant]
     Active Substance: GARLIC
  25. VITAMIN D [Concomitant]
     Active Substance: CHOLECALCIFEROL
  26. VITAMIN E [Concomitant]
     Active Substance: .ALPHA.-TOCOPHEROL
  27. ACIDOPHILUS [Concomitant]
     Active Substance: LACTOBACILLUS ACIDOPHILUS

REACTIONS (12)
  - Rash erythematous [Unknown]
  - Throat lesion [Unknown]
  - Tongue discolouration [Unknown]
  - Oral pain [Unknown]
  - Pharyngeal erythema [Unknown]
  - Malaise [Unknown]
  - Headache [Unknown]
  - Tinnitus [Unknown]
  - Diarrhoea [Unknown]
  - Oral fungal infection [Not Recovered/Not Resolved]
  - Pyrexia [Unknown]
  - Off label use [Unknown]

NARRATIVE: CASE EVENT DATE: 20131217
